FAERS Safety Report 18973562 (Version 1)
Quarter: 2021Q1

REPORT INFORMATION
  Report Type: Spontaneous
  Country: FR (occurrence: FR)
  Receive Date: 20210305
  Receipt Date: 20210305
  Transmission Date: 20210420
  Serious: Yes (Hospitalization, Other)
  Sender: FDA-Public Use
  Company Number: FR-PFIZER INC-2021189386

PATIENT
  Age: 52 Year
  Sex: Female

DRUGS (4)
  1. EXEMESTANE. [Suspect]
     Active Substance: EXEMESTANE
     Indication: INVASIVE DUCTAL BREAST CARCINOMA
     Dosage: 25 MG, 1X/DAY
     Route: 048
     Dates: start: 201802, end: 20200209
  2. EPIRUBICIN HCL [Suspect]
     Active Substance: EPIRUBICIN HYDROCHLORIDE
     Indication: INVASIVE DUCTAL BREAST CARCINOMA
     Dosage: UNK
     Route: 040
     Dates: start: 201201, end: 201203
  3. AFINITOR [Suspect]
     Active Substance: EVEROLIMUS
     Indication: INVASIVE DUCTAL BREAST CARCINOMA
     Dosage: 1 DF, 1X/DAY
     Route: 048
     Dates: start: 201802, end: 20200209
  4. DECAPEPTYL [TRIPTORELIN] [Suspect]
     Active Substance: TRIPTORELIN
     Indication: INVASIVE DUCTAL BREAST CARCINOMA
     Dosage: 1 DF, EVERY 3 MONTHS
     Route: 058
     Dates: start: 201802

REACTIONS (1)
  - Cardiac failure [Not Recovered/Not Resolved]

NARRATIVE: CASE EVENT DATE: 20210201
